FAERS Safety Report 6538755-2 (Version None)
Quarter: 2010Q1

REPORT INFORMATION
  Report Type: 
  Country: None (occurrence: None)
  Receive Date: 20100114
  Receipt Date: 20100114
  Transmission Date: 20100710
  Serious: Yes (Other)
  Sender: FDA-Public Use
  Company Number: None

PATIENT
  Age: 62 Year
  Sex: Female
  Weight: 98.4306 kg

DRUGS (1)
  1. ENBREL [Suspect]
     Indication: RHEUMATOID ARTHRITIS
     Dosage: 50MG EVERY WEEK SQ ABOUT 1 MONTH
     Route: 058

REACTIONS (3)
  - IMMEDIATE POST-INJECTION REACTION [None]
  - OEDEMA PERIPHERAL [None]
  - RASH [None]
